FAERS Safety Report 22303542 (Version 2)
Quarter: 2023Q2

REPORT INFORMATION
  Report Type: Spontaneous
  Country: IT (occurrence: IT)
  Receive Date: 20230510
  Receipt Date: 20230510
  Transmission Date: 20230721
  Serious: Yes (Hospitalization, Other)
  Sender: FDA-Public Use
  Company Number: IT-EMA-DD-20230110-225467-125336

PATIENT
  Age: 72 Year
  Sex: Male

DRUGS (8)
  1. METHYLPREDNISOLONE [Suspect]
     Active Substance: METHYLPREDNISOLONE
     Indication: Drug reaction with eosinophilia and systemic symptoms
     Dosage: 50 MG, DAILY FOR 0.8 MG/KG
     Route: 048
  2. METHYLPREDNISOLONE [Suspect]
     Active Substance: METHYLPREDNISOLONE
     Dosage: 37.5 MG, DAILY, FOR 0.6 MG/KG
     Route: 048
  3. CYCLOPHOSPHAMIDE [Suspect]
     Active Substance: CYCLOPHOSPHAMIDE
     Indication: Plasma cell myeloma
     Dosage: 300 MG, WEEKLY
     Route: 048
  4. LENALIDOMIDE [Suspect]
     Active Substance: LENALIDOMIDE
     Indication: Metastases to bone
     Dosage: 5 MG, CYCLIC (DAYS 1-21 IN 28-DAYS CYCLE)
     Route: 048
     Dates: start: 201911, end: 2019
  5. LENALIDOMIDE [Suspect]
     Active Substance: LENALIDOMIDE
     Indication: Plasma cell myeloma
  6. PREDNISONE [Suspect]
     Active Substance: PREDNISONE
     Indication: Drug reaction with eosinophilia and systemic symptoms
     Dosage: 0.8 MG/KG, DAILY
  7. PREDNISONE [Suspect]
     Active Substance: PREDNISONE
     Dosage: 0.6 MG/KG (TAPERED TO 0,6 MG/KG AFTER 1 WEEK)
  8. LEVOFLOXACIN [Concomitant]
     Active Substance: LEVOFLOXACIN
     Indication: Drug reaction with eosinophilia and systemic symptoms
     Dosage: UNK

REACTIONS (13)
  - Leukopenia [Unknown]
  - Syncope [Unknown]
  - Liver injury [Unknown]
  - Pyrexia [Unknown]
  - Skin lesion inflammation [Unknown]
  - Eosinophilia [Unknown]
  - Leukocytosis [Unknown]
  - Rash papular [Unknown]
  - Human herpesvirus 6 infection reactivation [Recovered/Resolved]
  - Drug abuse [Unknown]
  - Rash [Unknown]
  - Rebound effect [Unknown]
  - Off label use [Unknown]
